FAERS Safety Report 9507660 (Version 1)
Quarter: 2013Q1

REPORT INFORMATION
  Report Type: Spontaneous
  Country: US (occurrence: None)
  Receive Date: 20130305
  Receipt Date: 20130305
  Transmission Date: 20140127
  Serious: Yes (Other)
  Sender: FDA-Public Use
  Company Number: 163-21880-12114100

PATIENT
  Age: 63 Year
  Sex: Female

DRUGS (1)
  1. REVLIMID (LENALIDOMIDE) (25 MILLIGRAM, CAPSULES) [Suspect]
     Dosage: 25 MG, 21 IN 21 D, PO
     Route: 048
     Dates: start: 20120303

REACTIONS (2)
  - Gastrointestinal disorder [None]
  - Blood pressure [None]
